FAERS Safety Report 16131652 (Version 1)
Quarter: 2019Q1

REPORT INFORMATION
  Report Type: Other
  Country: TR (occurrence: TR)
  Receive Date: 20190329
  Receipt Date: 20190329
  Transmission Date: 20190418
  Serious: Yes (Other)
  Sender: FDA-Public Use
  Company Number: TR-ORCHID HEALTHCARE-2064894

PATIENT
  Age: 60 Year

DRUGS (1)
  1. CEFUROXIME AXETIL. [Suspect]
     Active Substance: CEFUROXIME AXETIL
     Indication: CATARACT OPERATION
     Route: 050

REACTIONS (4)
  - Retinal infarction [Not Recovered/Not Resolved]
  - Retinal haemorrhage [None]
  - Corneal oedema [None]
  - Post procedural complication [None]
